FAERS Safety Report 8362381-6 (Version None)
Quarter: 2012Q2

REPORT INFORMATION
  Report Type: 
  Country: None (occurrence: None)
  Receive Date: 20120516
  Receipt Date: 20120507
  Transmission Date: 20120825
  Serious: Yes (Hospitalization)
  Sender: FDA-Public Use
  Company Number: US-BIOGENIDEC-2012BI008650

PATIENT
  Age: 63 Year
  Sex: Female

DRUGS (5)
  1. AVONEX [Concomitant]
     Indication: MULTIPLE SCLEROSIS
     Route: 030
     Dates: start: 20030220, end: 20030520
  2. TYSABRI [Suspect]
     Indication: MULTIPLE SCLEROSIS
     Route: 042
  3. AVONEX [Concomitant]
     Route: 030
  4. TYSABRI [Suspect]
     Route: 042
     Dates: start: 20050121, end: 20050301
  5. TYSABRI [Suspect]
     Route: 042
     Dates: start: 20061018

REACTIONS (2)
  - UPPER RESPIRATORY TRACT INFECTION [None]
  - PNEUMONIA [None]
